FAERS Safety Report 16077169 (Version 2)
Quarter: 2019Q2

REPORT INFORMATION
  Report Type: Report from Study
  Country: JP (occurrence: JP)
  Receive Date: 20190315
  Receipt Date: 20190417
  Transmission Date: 20190711
  Serious: Yes (Other)
  Sender: FDA-Public Use
  Company Number: JP-AMGEN-JPNCT2013094429

PATIENT
  Age: 8 Year
  Sex: Male
  Weight: 25 kg

DRUGS (59)
  1. ROMIPLOSTIM [Suspect]
     Active Substance: ROMIPLOSTIM
     Dosage: 7 MICROGRAM/KILOGRAM
     Route: 058
     Dates: start: 20130724, end: 20130724
  2. VENILON [Concomitant]
     Active Substance: HUMAN IMMUNOGLOBULIN G
     Indication: HYPOGAMMAGLOBULINAEMIA
     Dosage: 400 MILLIGRAM/KILOGRAM, UNK
     Route: 065
     Dates: start: 20121212, end: 20121215
  3. VENILON [Concomitant]
     Active Substance: HUMAN IMMUNOGLOBULIN G
     Dosage: 2000 MILLIGRAM/KILOGRAM, UNK
     Route: 065
     Dates: start: 20130509, end: 20130510
  4. BLOPRESS [Concomitant]
     Active Substance: CANDESARTAN CILEXETIL
     Dosage: 4 MILLIGRAM
     Route: 048
  5. ADOAIR [Concomitant]
     Active Substance: FLUTICASONE PROPIONATE\SALMETEROL XINAFOATE
     Indication: ASTHMA
     Dosage: UNK
  6. ROMIPLOSTIM [Suspect]
     Active Substance: ROMIPLOSTIM
     Dosage: 6 MICROGRAM/KILOGRAM, Q2WK
     Route: 058
     Dates: start: 20130826, end: 20130909
  7. VENILON [Concomitant]
     Active Substance: HUMAN IMMUNOGLOBULIN G
     Indication: IMMUNE THROMBOCYTOPENIC PURPURA
     Dosage: 400 MILLIGRAM/KILOGRAM, UNK
     Route: 065
     Dates: start: 20130108, end: 20130108
  8. VENILON [Concomitant]
     Active Substance: HUMAN IMMUNOGLOBULIN G
     Dosage: 15000 MILLIGRAM, UNK
     Route: 065
     Dates: start: 20140620, end: 20140620
  9. ROMIPLOSTIM [Suspect]
     Active Substance: ROMIPLOSTIM
     Indication: IMMUNE THROMBOCYTOPENIC PURPURA
     Dosage: 1 MICROGRAM/KILOGRAM, QWK
     Route: 058
     Dates: start: 20121228, end: 20130104
  10. ROMIPLOSTIM [Suspect]
     Active Substance: ROMIPLOSTIM
     Dosage: 6 MICROGRAM/KILOGRAM, QD
     Route: 058
     Dates: start: 20130627, end: 20130627
  11. ROMIPLOSTIM [Suspect]
     Active Substance: ROMIPLOSTIM
     Dosage: 6 MICROGRAM/KILOGRAM
     Route: 058
     Dates: start: 20131118, end: 20131118
  12. VENILON [Concomitant]
     Active Substance: HUMAN IMMUNOGLOBULIN G
     Dosage: 2000 MILLIGRAM/KILOGRAM, UNK
     Route: 065
     Dates: start: 20130326, end: 20130329
  13. URSO [Concomitant]
     Active Substance: URSODIOL
     Indication: EPSTEIN-BARR VIRUS INFECTION
     Dosage: UNK
     Route: 048
  14. BAKTAR [Concomitant]
     Active Substance: SULFAMETHOXAZOLE\TRIMETHOPRIM
     Dosage: 1.5 GRAM
     Route: 048
  15. ROMIPLOSTIM [Suspect]
     Active Substance: ROMIPLOSTIM
     Dosage: 1 MICROGRAM/KILOGRAM, QD
     Route: 058
     Dates: start: 20130329, end: 20130329
  16. PREDNISOLONE. [Suspect]
     Active Substance: PREDNISOLONE
     Dosage: 2 MILLIGRAM/KILOGRAM, UNK
     Route: 048
     Dates: start: 20121217, end: 20130116
  17. PREDNISOLONE. [Suspect]
     Active Substance: PREDNISOLONE
     Dosage: 1.2 MILLIGRAM/KILOGRAM, UNK
     Route: 048
     Dates: start: 20130123, end: 2013
  18. CELLCEPT [Concomitant]
     Active Substance: MYCOPHENOLATE MOFETIL\MYCOPHENOLATE MOFETIL HYDROCHLORIDE
     Dosage: 40 MILLIGRAM/KILOGRAM
     Route: 048
     Dates: start: 20130104, end: 20130206
  19. RITUXAN [Concomitant]
     Active Substance: RITUXIMAB
     Indication: IMMUNE THROMBOCYTOPENIC PURPURA
     Dosage: 340 MILLIGRAM, QWK
     Route: 065
     Dates: start: 20141120, end: 20141225
  20. RITUXAN [Concomitant]
     Active Substance: RITUXIMAB
     Dosage: 340 MILLIGRAM, QWK
     Route: 065
     Dates: start: 20140516, end: 20140620
  21. RITUXAN [Concomitant]
     Active Substance: RITUXIMAB
     Dosage: 340 MILLIGRAM, QWK
     Route: 065
     Dates: start: 20141120, end: 20141225
  22. VENILON [Concomitant]
     Active Substance: HUMAN IMMUNOGLOBULIN G
     Dosage: 600 MILLIGRAM/KILOGRAM, UNK
     Route: 065
     Dates: start: 20130125, end: 20130125
  23. VENILON [Concomitant]
     Active Substance: HUMAN IMMUNOGLOBULIN G
     Dosage: 15 GRAM
     Route: 065
  24. BAKTAR [Concomitant]
     Active Substance: SULFAMETHOXAZOLE\TRIMETHOPRIM
     Indication: PROPHYLAXIS
     Dosage: 1500 MILLIGRAM, UNK
     Route: 048
     Dates: start: 20120709
  25. SINGULAIR [Concomitant]
     Active Substance: MONTELUKAST SODIUM
     Indication: ASTHMA
     Dosage: UNK
     Route: 048
  26. BLOPRESS [Concomitant]
     Active Substance: CANDESARTAN CILEXETIL
     Indication: HYPERTENSION
     Dosage: 2 MILLIGRAM
     Route: 048
     Dates: start: 20130405
  27. HOKUNALIN [Concomitant]
     Active Substance: TULOBUTEROL
     Indication: ASTHMA
     Dosage: 1 MILLIGRAM
     Route: 061
     Dates: start: 20130403
  28. ROMIPLOSTIM [Suspect]
     Active Substance: ROMIPLOSTIM
     Dosage: 5 MICROGRAM/KILOGRAM, QD
     Route: 058
     Dates: start: 20130125, end: 20130125
  29. ROMIPLOSTIM [Suspect]
     Active Substance: ROMIPLOSTIM
     Dosage: 5 MICROGRAM/KILOGRAM, QWK
     Route: 058
     Dates: start: 20130419, end: 20130502
  30. ROMIPLOSTIM [Suspect]
     Active Substance: ROMIPLOSTIM
     Dosage: 7 MICROGRAM/KILOGRAM, QWK
     Route: 058
     Dates: start: 20130509, end: 20130620
  31. ROMIPLOSTIM [Suspect]
     Active Substance: ROMIPLOSTIM
     Dosage: 7 MICROGRAM/KILOGRAM, QMO
     Route: 058
     Dates: start: 20140312, end: 20140407
  32. ROMIPLOSTIM [Suspect]
     Active Substance: ROMIPLOSTIM
     Dosage: 7 MICROGRAM/KILOGRAM, Q3WK
     Route: 058
     Dates: start: 20140530, end: 20140620
  33. PREDNISOLONE. [Suspect]
     Active Substance: PREDNISOLONE
     Dosage: 1.6 MILLIGRAM/KILOGRAM, UNK
     Route: 048
     Dates: start: 20130116
  34. PREDNISOLONE. [Suspect]
     Active Substance: PREDNISOLONE
     Dosage: 0.16 MILLIGRAM/KILOGRAM, UNK
     Route: 048
     Dates: start: 20130326
  35. SEPAMIT-R [Concomitant]
     Active Substance: NIFEDIPINE
     Indication: PRODUCT USED FOR UNKNOWN INDICATION
     Dosage: UNK
     Route: 048
  36. ROMIPLOSTIM [Suspect]
     Active Substance: ROMIPLOSTIM
     Dosage: 7 MICROGRAM/KILOGRAM
     Route: 058
     Dates: start: 20130819, end: 20130819
  37. ROMIPLOSTIM [Suspect]
     Active Substance: ROMIPLOSTIM
     Dosage: 7 MICROGRAM/KILOGRAM, Q4WK
     Route: 058
     Dates: start: 20131209, end: 20140213
  38. ROMIPLOSTIM [Suspect]
     Active Substance: ROMIPLOSTIM
     Dosage: 7 MICROGRAM/KILOGRAM
     Route: 058
     Dates: start: 20140501, end: 20140501
  39. PREDNISOLONE. [Suspect]
     Active Substance: PREDNISOLONE
     Indication: IMMUNE THROMBOCYTOPENIC PURPURA
     Dosage: 0.16 MILLIGRAM/KILOGRAM, UNK
     Route: 048
     Dates: start: 20121026, end: 20121217
  40. RITUXAN [Concomitant]
     Active Substance: RITUXIMAB
     Dosage: 375 MILLIGRAM, QWK
     Route: 065
     Dates: start: 20121219, end: 20121226
  41. RITUXAN [Concomitant]
     Active Substance: RITUXIMAB
     Dosage: 375 MILLIGRAM, QWK
     Route: 065
     Dates: start: 20130109, end: 20130117
  42. RITUXAN [Concomitant]
     Active Substance: RITUXIMAB
     Dosage: 375 MILLIGRAM, QWK
     Route: 065
     Dates: start: 20130514, end: 20130608
  43. VENILON [Concomitant]
     Active Substance: HUMAN IMMUNOGLOBULIN G
     Dosage: 2000 MILLIGRAM/KILOGRAM, UNK
     Route: 065
     Dates: start: 20130403, end: 20130404
  44. VENILON [Concomitant]
     Active Substance: HUMAN IMMUNOGLOBULIN G
     Dosage: 2000 MILLIGRAM/KILOGRAM, UNK
     Route: 065
     Dates: start: 20130415, end: 20130416
  45. ITRIZOLE [Concomitant]
     Active Substance: ITRACONAZOLE
     Dosage: 5 MILLILITER
     Route: 048
  46. ROMIPLOSTIM [Suspect]
     Active Substance: ROMIPLOSTIM
     Dosage: 6 MICROGRAM/KILOGRAM
     Route: 058
     Dates: start: 20131010, end: 20131010
  47. ROMIPLOSTIM [Suspect]
     Active Substance: ROMIPLOSTIM
     Dosage: 7 MICROGRAM/KILOGRAM, Q4WK
     Route: 058
     Dates: start: 20140710
  48. VENILON [Concomitant]
     Active Substance: HUMAN IMMUNOGLOBULIN G
     Dosage: 600 MILLIGRAM/KILOGRAM, QWK
     Route: 065
     Dates: start: 20130115, end: 20130122
  49. VENILON [Concomitant]
     Active Substance: HUMAN IMMUNOGLOBULIN G
     Dosage: 2000 MILLIGRAM/KILOGRAM, UNK
     Route: 065
     Dates: start: 20130426, end: 20130429
  50. ROMIPLOSTIM [Suspect]
     Active Substance: ROMIPLOSTIM
     Indication: EPSTEIN-BARR VIRUS INFECTION
     Dosage: 3 MICROGRAM/KILOGRAM, QWK
     Route: 058
     Dates: start: 20130111, end: 20130118
  51. ROMIPLOSTIM [Suspect]
     Active Substance: ROMIPLOSTIM
     Dosage: 3 MICROGRAM/KILOGRAM, QWK
     Route: 058
     Dates: start: 20130405, end: 20130412
  52. ROMIPLOSTIM [Suspect]
     Active Substance: ROMIPLOSTIM
     Dosage: 5 MICROGRAM/KILOGRAM, QWK
     Route: 058
     Dates: start: 20130704, end: 20130718
  53. ROMIPLOSTIM [Suspect]
     Active Substance: ROMIPLOSTIM
     Dosage: 6 MICROGRAM/KILOGRAM, QWK
     Route: 058
     Dates: start: 20130731, end: 20130807
  54. ROMIPLOSTIM [Suspect]
     Active Substance: ROMIPLOSTIM
     Dosage: 7 MICROGRAM/KILOGRAM, Q3WK
     Route: 058
     Dates: start: 20130913, end: 20131002
  55. ROMIPLOSTIM [Suspect]
     Active Substance: ROMIPLOSTIM
     Dosage: 7 MICROGRAM/KILOGRAM
     Route: 058
     Dates: start: 20131028, end: 20131028
  56. CELLCEPT [Concomitant]
     Active Substance: MYCOPHENOLATE MOFETIL\MYCOPHENOLATE MOFETIL HYDROCHLORIDE
     Indication: PRODUCT USED FOR UNKNOWN INDICATION
     Dosage: 20 MILLIGRAM/KILOGRAM
     Route: 048
     Dates: start: 20121223, end: 20130104
  57. GASTER [Concomitant]
     Active Substance: FAMOTIDINE
     Indication: PROPHYLAXIS
     Dosage: 20 MILLIGRAM
     Route: 048
  58. MICARDIS [Concomitant]
     Active Substance: TELMISARTAN
     Indication: HYPERTENSION
     Dosage: UNK
     Route: 048
  59. ITRIZOLE [Concomitant]
     Active Substance: ITRACONAZOLE
     Indication: PROPHYLAXIS
     Dosage: 50 MILLIGRAM
     Route: 048
     Dates: start: 20130520

REACTIONS (10)
  - Infection [Recovering/Resolving]
  - Off label use [Unknown]
  - Headache [Recovering/Resolving]
  - Hypogammaglobulinaemia [Recovering/Resolving]
  - Hypersensitivity [Recovering/Resolving]
  - Hypertension [Recovering/Resolving]
  - Osteoporosis [Recovering/Resolving]
  - Hypertension [Recovering/Resolving]
  - Diarrhoea [Recovering/Resolving]
  - Neutrophil count increased [Recovering/Resolving]

NARRATIVE: CASE EVENT DATE: 20121228
